FAERS Safety Report 7879087-X (Version None)
Quarter: 2011Q4

REPORT INFORMATION
  Report Type: 
  Country: None (occurrence: None)
  Receive Date: 20111101
  Receipt Date: 20111026
  Transmission Date: 20120403
  Serious: Yes (Life-Threatening, Hospitalization, Other)
  Sender: FDA-Public Use
  Company Number: PHHY2011FR82412

PATIENT
  Age: 74 Year
  Sex: Female
  Weight: 57 kg

DRUGS (7)
  1. GLEEVEC [Suspect]
     Indication: CHRONIC MYELOID LEUKAEMIA
     Dosage: 1 DF (400 MG), DAILY
     Route: 048
     Dates: start: 20110203, end: 20110630
  2. LORAZEPAM [Concomitant]
     Dosage: 1 MG DAILY
  3. IRBESARTAN [Suspect]
     Indication: HYPERTENSION
     Dosage: 300 MG DAILY
     Dates: start: 20100101
  4. ATORVASTATIN CALCIUM [Suspect]
     Indication: HYPERCHOLESTEROLAEMIA
     Dosage: 20 MG DAILY
     Dates: start: 20030101
  5. ESOMEPRAZOLE [Concomitant]
     Dosage: UNK UKN, UNK
  6. DIAMICRON [Concomitant]
     Indication: TYPE 2 DIABETES MELLITUS
     Dates: start: 20030101
  7. CORTICOSTEROID NOS [Concomitant]
     Dosage: 1 MG/KG

REACTIONS (12)
  - ANAEMIA [None]
  - PROTHROMBIN TIME RATIO DECREASED [None]
  - HEPATIC NECROSIS [None]
  - HEPATITIS ACUTE [None]
  - EYELID OEDEMA [None]
  - ALANINE AMINOTRANSFERASE INCREASED [None]
  - INFLAMMATION [None]
  - HEPATIC ENZYME INCREASED [None]
  - ASPARTATE AMINOTRANSFERASE INCREASED [None]
  - HAEMOGLOBIN DECREASED [None]
  - CYTOLYTIC HEPATITIS [None]
  - CYTOMEGALOVIRUS TEST POSITIVE [None]
